FAERS Safety Report 6937094-5 (Version None)
Quarter: 2010Q3

REPORT INFORMATION
  Report Type: 
  Country: None (occurrence: None)
  Receive Date: 20100823
  Receipt Date: 20100818
  Transmission Date: 20110219
  Serious: Yes (Death)
  Sender: FDA-Public Use
  Company Number: US-CELGENEUS-163-20785-10081816

PATIENT
  Sex: Female

DRUGS (2)
  1. THALOMID [Suspect]
     Indication: MULTIPLE MYELOMA
     Route: 048
     Dates: start: 20030501, end: 20051101
  2. THALOMID [Suspect]
     Dosage: 200MG-400MG
     Route: 048
     Dates: start: 20030101, end: 20030401

REACTIONS (2)
  - MULTIPLE MYELOMA [None]
  - SMALL CELL CARCINOMA [None]
